FAERS Safety Report 11099520 (Version 1)
Quarter: 2015Q2

REPORT INFORMATION
  Report Type: Spontaneous
  Country: GB (occurrence: GB)
  Receive Date: 20150508
  Receipt Date: 20150508
  Transmission Date: 20150821
  Serious: Yes (Disabling, Other)
  Sender: FDA-Public Use
  Company Number: GB-JNJFOC-20150423776

PATIENT
  Age: 55 Year
  Sex: Female
  Weight: 52 kg

DRUGS (2)
  1. PROPYLTHIOURACIL. [Concomitant]
     Active Substance: PROPYLTHIOURACIL
     Route: 065
  2. USTEKINUMAB [Suspect]
     Active Substance: USTEKINUMAB
     Indication: PSORIASIS
     Route: 058
     Dates: start: 201101, end: 201405

REACTIONS (5)
  - Anaemia [Recovering/Resolving]
  - Arthralgia [Recovering/Resolving]
  - Abnormal loss of weight [Recovering/Resolving]
  - Thymus enlargement [Unknown]
  - Malaise [Recovering/Resolving]

NARRATIVE: CASE EVENT DATE: 201404
